FAERS Safety Report 7631768-9 (Version None)
Quarter: 2011Q3

REPORT INFORMATION
  Report Type: 
  Country: None (occurrence: None)
  Receive Date: 20110725
  Receipt Date: 20110310
  Transmission Date: 20111222
  Serious: No
  Sender: FDA-Public Use
  Company Number: US-BRISTOL-MYERS SQUIBB COMPANY-15600208

PATIENT
  Age: 83 Year
  Sex: Male
  Weight: 100 kg

DRUGS (6)
  1. FUROSEMIDE [Concomitant]
  2. PRAVASTATIN SODIUM [Concomitant]
  3. LOSARTAN POTASSIUM [Concomitant]
  4. COUMADIN [Suspect]
     Dosage: 1 DF = 10MG ON T,W,TH AND 5MG ON ALL OTHER DAYS.
     Dates: start: 19930101
  5. KLOR-CON [Concomitant]
     Dosage: 2 IN THE MORNING AND 1 IN THE AFTERNOON
  6. SPIRONOLACTONE [Concomitant]
     Dosage: 1/2 PER DAY

REACTIONS (1)
  - PAIN [None]
